FAERS Safety Report 5565762-9 (Version None)
Quarter: 2007Q4

REPORT INFORMATION
  Report Type: 
  Country: None (occurrence: None)
  Receive Date: 20071218
  Receipt Date: 20071212
  Transmission Date: 20080405
  Serious: Yes (Life-Threatening, Hospitalization, Disabling)
  Sender: FDA-Public Use
  Company Number: US-MERCK-0712USA00261

PATIENT
  Age: 8 Year
  Sex: Female

DRUGS (5)
  1. SINGULAIR [Suspect]
     Indication: RHINITIS ALLERGIC
     Route: 048
  2. PREVACID [Concomitant]
     Route: 065
  3. PREDNISONE [Concomitant]
     Route: 065
  4. ZYRTEC [Concomitant]
     Route: 065
  5. CORTICOSTEROIDS (UNSPECIFIED) [Concomitant]

REACTIONS (3)
  - ALLERGIC GRANULOMATOUS ANGIITIS [None]
  - HYPEREOSINOPHILIC SYNDROME [None]
  - MULTI-ORGAN FAILURE [None]
